FAERS Safety Report 10694272 (Version 2)
Quarter: 2015Q1

REPORT INFORMATION
  Report Type: Spontaneous
  Country: GB (occurrence: GB)
  Receive Date: 20150107
  Receipt Date: 20150107
  Transmission Date: 20150721
  Serious: Yes (Other)
  Sender: FDA-Public Use
  Company Number: PHHY2014GB111005

PATIENT
  Age: 10 Year
  Sex: Male
  Weight: 35 kg

DRUGS (3)
  1. CLONIDINE. [Concomitant]
     Active Substance: CLONIDINE
     Dosage: 150 UG, QD  (ANDER MCKENZIE CLONIDINE)
     Route: 048
     Dates: start: 201405
  2. CLONIDINE. [Suspect]
     Active Substance: CLONIDINE
     Indication: TOURETTE^S DISORDER
     Dosage: 125 UG, QD (75UG IN THE MORNING AND 50UG IN THE EVENING)
     Route: 048
     Dates: start: 201405
  3. CLONIDINE. [Concomitant]
     Active Substance: CLONIDINE
     Indication: TOURETTE^S DISORDER
     Dosage: 125 UG, QD (ANDER MCKENZIE CLONIDINE)
     Route: 048
     Dates: start: 201101, end: 201405

REACTIONS (3)
  - Abnormal behaviour [Recovering/Resolving]
  - Tic [Recovering/Resolving]
  - Aggression [Recovering/Resolving]

NARRATIVE: CASE EVENT DATE: 201405
